FAERS Safety Report 9600887 (Version 1)
Quarter: 2013Q4

REPORT INFORMATION
  Report Type: Spontaneous
  Country: US (occurrence: US)
  Receive Date: 20131004
  Receipt Date: 20131004
  Transmission Date: 20140711
  Serious: No
  Sender: FDA-Public Use
  Company Number: US-AMGEN-USASP2013037797

PATIENT
  Age: 50 Year
  Sex: Female
  Weight: 99.77 kg

DRUGS (7)
  1. ENBREL [Suspect]
     Indication: PRODUCT USED FOR UNKNOWN INDICATION
     Dosage: 50 MG, ONCE A WEEK
     Route: 058
  2. OMEPRAZOLE [Concomitant]
     Dosage: 20 MG, UNK
  3. METOPROLOL [Concomitant]
     Dosage: 50 MG, UNK
  4. WARFARIN [Concomitant]
     Dosage: 6 MG, UNK
  5. FOLIC ACID [Concomitant]
     Dosage: UNK
  6. MULTIVITAMINS, PLAIN [Concomitant]
     Dosage: UNK
  7. METHOTREXATE [Concomitant]
     Dosage: 25 MG/ML, UNK

REACTIONS (3)
  - Ear infection [Unknown]
  - Oropharyngeal pain [Unknown]
  - Nasal discomfort [Unknown]
